FAERS Safety Report 21974118 (Version 2)
Quarter: 2023Q1

REPORT INFORMATION
  Report Type: Report from Study
  Country: BD (occurrence: BD)
  Receive Date: 20230209
  Receipt Date: 20230308
  Transmission Date: 20230417
  Serious: Yes (Death)
  Sender: FDA-Public Use
  Company Number: BD-002147023-NVSC2023BD030018

PATIENT
  Age: 5 Year
  Sex: Male
  Weight: 22 kg

DRUGS (1)
  1. CYCLOSPORINE [Suspect]
     Active Substance: CYCLOSPORINE
     Indication: Aplastic anaemia
     Dosage: UNK
     Route: 048
     Dates: start: 20221225, end: 20230112

REACTIONS (2)
  - Anaemia [Fatal]
  - Product use in unapproved indication [Unknown]

NARRATIVE: CASE EVENT DATE: 20221225
